FAERS Safety Report 20960507 (Version 1)
Quarter: 2022Q2

REPORT INFORMATION
  Report Type: Spontaneous
  Country: US (occurrence: US)
  Receive Date: 20220615
  Receipt Date: 20220615
  Transmission Date: 20220720
  Serious: No
  Sender: FDA-Public Use
  Company Number: US-AMGEN-USASP2022100672

PATIENT
  Sex: Male

DRUGS (1)
  1. LUMAKRAS [Suspect]
     Active Substance: SOTORASIB
     Indication: Non-small cell lung cancer
     Dosage: UNK
     Route: 065
     Dates: start: 202205

REACTIONS (4)
  - Weight decreased [Unknown]
  - Constipation [Unknown]
  - Nausea [Unknown]
  - Vomiting [Unknown]

NARRATIVE: CASE EVENT DATE: 20220501
